FAERS Safety Report 6381440-0 (Version None)
Quarter: 2009Q3

REPORT INFORMATION
  Report Type: 
  Country: None (occurrence: None)
  Receive Date: 20090929
  Receipt Date: 20090922
  Transmission Date: 20100115
  Serious: Yes (Hospitalization, Other)
  Sender: FDA-Public Use
  Company Number: US-AMGEN-US361655

PATIENT
  Sex: Female
  Weight: 102.2 kg

DRUGS (17)
  1. NPLATE [Suspect]
     Indication: IDIOPATHIC THROMBOCYTOPENIC PURPURA
     Route: 065
     Dates: start: 20090721
  2. AMIODARONE HCL [Concomitant]
     Route: 048
  3. METFORMIN HCL [Concomitant]
     Route: 048
  4. PREDNISONE TAB [Concomitant]
     Route: 048
     Dates: start: 20090610
  5. PREDNISONE TAB [Concomitant]
     Route: 048
     Dates: start: 20090715
  6. LEVOTHYROXINE SODIUM [Concomitant]
     Route: 048
  7. LASIX [Concomitant]
     Route: 048
  8. FOLIC ACID [Concomitant]
     Route: 048
  9. LISINOPRIL [Concomitant]
     Route: 048
  10. SIMVASTATIN [Concomitant]
     Route: 048
  11. XANAX [Concomitant]
     Route: 048
  12. NITROGLYCERIN [Concomitant]
     Route: 060
  13. NEXIUM [Concomitant]
     Route: 048
  14. VITAMIN B-12 [Concomitant]
     Route: 065
  15. AMBIEN [Concomitant]
     Route: 048
  16. ZANTAC [Concomitant]
     Route: 048
  17. ACYCLOVIR [Concomitant]
     Route: 048

REACTIONS (6)
  - APLASTIC ANAEMIA [None]
  - BONE MARROW FAILURE [None]
  - DRUG INEFFECTIVE [None]
  - MUSCULOSKELETAL PAIN [None]
  - PETECHIAE [None]
  - PLATELET COUNT DECREASED [None]
